FAERS Safety Report 17223318 (Version 1)
Quarter: 2020Q1

REPORT INFORMATION
  Report Type: Report from Study
  Country: US (occurrence: US)
  Receive Date: 20200102
  Receipt Date: 20200102
  Transmission Date: 20200409
  Serious: No
  Sender: FDA-Public Use
  Company Number: NVSC2019US083984

PATIENT
  Age: 50 Year
  Sex: Female
  Weight: 135 kg

DRUGS (2)
  1. OMADACYCLINE. [Concomitant]
     Active Substance: OMADACYCLINE
     Indication: MYCOBACTERIUM ABSCESSUS INFECTION
     Dosage: 300 MG
     Route: 048
     Dates: start: 20191031
  2. LAMPRENE [Suspect]
     Active Substance: CLOFAZIMINE
     Indication: MYCOBACTERIUM ABSCESSUS INFECTION
     Dosage: 100 MG, QD
     Route: 048
     Dates: start: 20191031

REACTIONS (1)
  - Neurodermatitis [Unknown]

NARRATIVE: CASE EVENT DATE: 20191111
